FAERS Safety Report 19030192 (Version 1)
Quarter: 2021Q1

REPORT INFORMATION
  Report Type: Spontaneous
  Country: NL (occurrence: NL)
  Receive Date: 20210319
  Receipt Date: 20210319
  Transmission Date: 20210420
  Serious: Yes (Life-Threatening)
  Sender: FDA-Public Use
  Company Number: NVSC2021NL060561

PATIENT
  Age: 92 Year
  Sex: Female
  Weight: 56 kg

DRUGS (8)
  1. MONTELUKAST [Concomitant]
     Active Substance: MONTELUKAST SODIUM
     Indication: PRODUCT USED FOR UNKNOWN INDICATION
     Dosage: 10 MG (OMHULDE TABLET, 10 MG (MILLIGRAM )
     Route: 065
  2. AZITHROMYCINE [Concomitant]
     Active Substance: AZITHROMYCIN
     Indication: CHRONIC OBSTRUCTIVE PULMONARY DISEASE
     Dosage: UNK (250 MG DAGELIJKS, ONDERHOUDSBEHANDELING COPD)
     Route: 065
  3. PREDNISOLON [Concomitant]
     Active Substance: PREDNISOLONE
     Indication: PRODUCT USED FOR UNKNOWN INDICATION
     Dosage: 30 MG
     Route: 065
  4. VENTOLIN [Concomitant]
     Active Substance: ALBUTEROL SULFATE
     Indication: PRODUCT USED FOR UNKNOWN INDICATION
     Dosage: 100 UG (AEROSOL 100 ?G/DOSIS (MICROGRAM PER DOSIS))
     Route: 065
  5. SPIOLTO RESPIMAT [Concomitant]
     Active Substance: OLODATEROL HYDROCHLORIDE\TIOTROPIUM BROMIDE MONOHYDRATE
     Indication: PRODUCT USED FOR UNKNOWN INDICATION
     Dosage: UNK (VERNEVELVLOEISTOF, 2,5/2,5 ?G/DOSIS (MICROGRAM PER DOSIS)
     Route: 065
  6. XARELTO [Concomitant]
     Active Substance: RIVAROXABAN
     Indication: PRODUCT USED FOR UNKNOWN INDICATION
     Dosage: 20 MG (TABLET, 20 MG (MILLIGRAM))
     Route: 065
  7. MOXIFLOXACIN. [Suspect]
     Active Substance: MOXIFLOXACIN
     Indication: RESPIRATORY TRACT INFECTION
     Dosage: UNK (1DD 1)
     Route: 065
     Dates: start: 20210222
  8. MOXIFLOXACIN. [Suspect]
     Active Substance: MOXIFLOXACIN
     Indication: CHRONIC OBSTRUCTIVE PULMONARY DISEASE

REACTIONS (6)
  - Consciousness fluctuating [Recovering/Resolving]
  - Chronic obstructive pulmonary disease [Recovering/Resolving]
  - Thirst decreased [Recovering/Resolving]
  - Malaise [Recovering/Resolving]
  - Pyrexia [Recovering/Resolving]
  - Fatigue [Recovering/Resolving]

NARRATIVE: CASE EVENT DATE: 20210222
